FAERS Safety Report 8923917 (Version 3)
Quarter: 2013Q1

REPORT INFORMATION
  Report Type: Spontaneous
  Country: US (occurrence: US)
  Receive Date: 20121126
  Receipt Date: 20130205
  Transmission Date: 20140127
  Serious: Yes (Hospitalization, Other)
  Sender: FDA-Public Use
  Company Number: US-VERTEX PHARMACEUTICAL INC.-2012-024739

PATIENT
  Age: 55 Year
  Sex: Female
  Weight: 65 kg

DRUGS (8)
  1. INCIVEK [Suspect]
     Indication: HEPATITIS C
     Dosage: 750 MG, TID
     Route: 048
     Dates: start: 20121111
  2. INCIVEK [Suspect]
     Dosage: 375 MG, QD
     Route: 048
     Dates: end: 20121121
  3. RIBAVIRIN [Suspect]
     Indication: HEPATITIS C
     Dosage: 400 MG, BID
     Dates: start: 20121111
  4. RIBAVIRIN [Suspect]
     Dosage: 200 MG, BID
     Route: 048
     Dates: end: 20121121
  5. PEGASYS [Suspect]
     Indication: HEPATITIS C
     Dosage: 180 ?G, WEEKLY
     Route: 058
     Dates: start: 20121111, end: 20121121
  6. CARAFATE [Concomitant]
  7. DEXILANT [Concomitant]
  8. ZOFRAN [Concomitant]

REACTIONS (6)
  - Abdominal pain upper [Recovered/Resolved]
  - Pancytopenia [Unknown]
  - Vomiting [Recovered/Resolved]
  - Nausea [Recovered/Resolved]
  - Decreased appetite [Unknown]
  - Inappropriate schedule of drug administration [Recovered/Resolved]
